FAERS Safety Report 5753176-8 (Version None)
Quarter: 2008Q2

REPORT INFORMATION
  Report Type: 
  Country: None (occurrence: None)
  Receive Date: 20080530
  Receipt Date: 20080526
  Transmission Date: 20081010
  Serious: Yes (Other)
  Sender: FDA-Public Use
  Company Number: ES-BRISTOL-MYERS SQUIBB COMPANY-14205645

PATIENT
  Age: 71 Year
  Sex: Female

DRUGS (5)
  1. PARAPLATIN [Suspect]
     Indication: METASTATIC NEOPLASM
     Dosage: THERAPY START DATE:25-JAN-2008 DURATION: 48 DAYS 150MG/15ML SOLUTION 1 VIAL = 15 ML
     Route: 042
     Dates: start: 20080312, end: 20080312
  2. PACLITAXEL [Suspect]
     Indication: METASTATIC NEOPLASM
     Dosage: LAST INITIATION DATE:13-MAR-2008 DURATION: 48 DAYS 6MG/ML VIAL 16.7ML(100MG)
     Route: 042
     Dates: start: 20080125, end: 20080125
  3. FORTECORTIN [Concomitant]
     Indication: METASTATIC NEOPLASM
     Dosage: THERAPY START DATE:25-JAN-2008 DURATION: 48 DAYS 4 MG SOLUTION 3 AMPOLLAS
     Route: 042
     Dates: start: 20080312, end: 20080312
  4. POLARAMINE [Concomitant]
     Indication: METASTATIC NEOPLASM
     Dosage: THERAPY START DATE:25-JAN-2008 DURATION: 48 DAYS 5 AMPOLLAS
     Route: 042
     Dates: start: 20080312, end: 20080312
  5. ZANTAC [Concomitant]
     Dosage: 5 AMPULES 5ML
     Route: 042

REACTIONS (8)
  - CHILLS [None]
  - CONVULSION [None]
  - CYANOSIS [None]
  - DYSPNOEA [None]
  - HYPERTENSION [None]
  - HYPOXIA [None]
  - LOSS OF CONSCIOUSNESS [None]
  - TACHYCARDIA [None]
